FAERS Safety Report 5110522-6 (Version None)
Quarter: 2006Q3

REPORT INFORMATION
  Report Type: 
  Country: None (occurrence: None)
  Receive Date: 20060921
  Receipt Date: 20051005
  Transmission Date: 20061208
  Serious: Yes (Hospitalization)
  Sender: FDA-Public Use
  Company Number: CA-BOEHRINGER INGELHEIM PHARMACEUTICALS, INC.-2005-CN-00965CN

PATIENT
  Sex: Male
  Weight: 82.5 kg

DRUGS (3)
  1. TIPRANAVIR + RITONAVIR CO-ADMIN [Suspect]
     Indication: HIV TEST POSITIVE
     Dosage: 1000MG TPV / 400MG RTV
     Route: 048
     Dates: start: 20040512, end: 20060314
  2. TENOFOVIR [Concomitant]
     Indication: HIV TEST POSITIVE
     Route: 048
     Dates: start: 20040512, end: 20051003
  3. LAMIVUDINE [Concomitant]
     Indication: HIV TEST POSITIVE
     Route: 048
     Dates: start: 20040512, end: 20051003

REACTIONS (2)
  - BILE DUCT STONE [None]
  - PANCREATITIS [None]
